FAERS Safety Report 23396927 (Version 1)
Quarter: 2024Q1

REPORT INFORMATION
  Report Type: Spontaneous
  Country: US (occurrence: US)
  Receive Date: 20240112
  Receipt Date: 20240112
  Transmission Date: 20240410
  Serious: No
  Sender: FDA-Public Use
  Company Number: US-SA-SAC20240110000296

PATIENT
  Age: 60 Year
  Sex: Male

DRUGS (2)
  1. ELOCTATE [Suspect]
     Active Substance: EFMOROCTOCOG ALFA
     Dosage: 2000 UNITS, INFUSION FREQUENCY: AS NEEDED
     Route: 065
  2. ELOCTATE [Suspect]
     Active Substance: EFMOROCTOCOG ALFA
     Dosage: 2000 UNITS, INFUSION FREQUENCY: AS NEEDED
     Route: 065

REACTIONS (2)
  - Folliculitis [Unknown]
  - Rash erythematous [Unknown]

NARRATIVE: CASE EVENT DATE: 20231222
